FAERS Safety Report 5294463-X (Version None)
Quarter: 2007Q2

REPORT INFORMATION
  Report Type: 
  Country: None (occurrence: None)
  Receive Date: 20070409
  Receipt Date: 20070409
  Transmission Date: 20071010
  Serious: Yes (Hospitalization)
  Sender: FDA-Public Use
  Company Number: None

PATIENT
  Sex: Male
  Weight: 110 kg

DRUGS (1)
  1. CAMPATH [Suspect]
     Dosage: 90 MG

REACTIONS (11)
  - AGITATION [None]
  - CONFUSIONAL STATE [None]
  - DELIRIUM [None]
  - DIARRHOEA [None]
  - HYPOTENSION [None]
  - HYPOXIA [None]
  - MENTAL STATUS CHANGES [None]
  - NAUSEA [None]
  - ORAL INTAKE REDUCED [None]
  - SEPSIS [None]
  - ULCER [None]
